FAERS Safety Report 8409220-2 (Version None)
Quarter: 2012Q2

REPORT INFORMATION
  Report Type: 
  Country: None (occurrence: None)
  Receive Date: 20120604
  Receipt Date: 20120531
  Transmission Date: 20120825
  Serious: Yes (Hospitalization)
  Sender: FDA-Public Use
  Company Number: FR-MERCK-1206FRA00002

PATIENT
  Age: 4 Year
  Sex: Female

DRUGS (5)
  1. LORATADINE [Concomitant]
     Indication: RHINITIS
     Route: 065
  2. ALBUTEROL SULFATE [Concomitant]
     Route: 055
  3. MOMETASONE FUROATE [Concomitant]
     Indication: RHINITIS
     Route: 065
  4. SINGULAIR [Suspect]
     Indication: ASTHMA
     Route: 048
     Dates: start: 20120301, end: 20120507
  5. BUDESONIDE [Concomitant]
     Route: 055

REACTIONS (3)
  - FALL [None]
  - HEADACHE [None]
  - EXPRESSIVE LANGUAGE DISORDER [None]
